FAERS Safety Report 22375630 (Version 2)
Quarter: 2023Q2

REPORT INFORMATION
  Report Type: Spontaneous
  Country: ES (occurrence: ES)
  Receive Date: 20230527
  Receipt Date: 20230602
  Transmission Date: 20230722
  Serious: Yes (Other)
  Sender: FDA-Public Use
  Company Number: ES-SUN PHARMACEUTICAL INDUSTRIES LTD-2023R1-388325

PATIENT
  Age: 62 Year
  Sex: Male

DRUGS (1)
  1. AMPHOTERICIN B [Suspect]
     Active Substance: AMPHOTERICIN B
     Indication: Mucormycosis
     Dosage: 325 MILLIGRAM, BID
     Route: 065

REACTIONS (8)
  - Cytokine release syndrome [Recovering/Resolving]
  - Flushing [Unknown]
  - Dyspnoea [Unknown]
  - Oxygen saturation decreased [Unknown]
  - Wheezing [Unknown]
  - Nausea [Unknown]
  - Hyperhidrosis [Unknown]
  - Back pain [Unknown]
